FAERS Safety Report 25247216 (Version 1)
Quarter: 2025Q2

REPORT INFORMATION
  Report Type: Spontaneous
  Country: US (occurrence: US)
  Receive Date: 20250428
  Receipt Date: 20250428
  Transmission Date: 20250717
  Serious: No
  Sender: JOHNSON AND JOHNSON
  Company Number: US-JNJFOC-20250430837

PATIENT
  Sex: Female

DRUGS (1)
  1. RYBREVANT [Suspect]
     Active Substance: AMIVANTAMAB-VMJW
     Indication: Product used for unknown indication
     Route: 065

REACTIONS (5)
  - Cough [Unknown]
  - Feeling abnormal [Unknown]
  - Vomiting [Unknown]
  - Nausea [Unknown]
  - Pruritus [Unknown]
